FAERS Safety Report 4465053-3 (Version None)
Quarter: 2004Q3

REPORT INFORMATION
  Report Type: 
  Country: None (occurrence: None)
  Receive Date: 20040928
  Receipt Date: 20040928
  Transmission Date: 20050211
  Serious: Yes (Hospitalization)
  Sender: FDA-Public Use
  Company Number: None

PATIENT
  Age: 67 Year
  Sex: Female
  Weight: 77.6 kg

DRUGS (11)
  1. MS CONTIN [Suspect]
     Indication: PAIN
     Dosage: 15 MG  2-3 TAB TID  ORAL
     Route: 048
     Dates: start: 20020827, end: 20040615
  2. PERCOCET [Suspect]
     Indication: PAIN
     Dosage: 5MG  BID  ORAL
     Route: 048
     Dates: start: 20021108, end: 20040615
  3. CELEXA [Concomitant]
  4. TRAZODONE HCL [Concomitant]
  5. WELLBUTRIN [Concomitant]
  6. FOSINOPRIL [Concomitant]
  7. CYCLOBENZAPRINE HCL [Concomitant]
  8. SIMVASTATIN [Concomitant]
  9. GEMFIBROZIL [Concomitant]
  10. SALSALATE [Concomitant]
  11. METHYLCELLULOSE [Concomitant]

REACTIONS (4)
  - ABNORMAL BEHAVIOUR [None]
  - ACCIDENTAL OVERDOSE [None]
  - AMNESIA [None]
  - MIOSIS [None]
